FAERS Safety Report 13303956 (Version 1)
Quarter: 2017Q1

REPORT INFORMATION
  Report Type: Not Available
  Country: US (occurrence: US)
  Receive Date: 20170307
  Receipt Date: 20170307
  Transmission Date: 20170428
  Serious: Yes (Other)
  Sender: FDA-Public Use
  Company Number: US--2017-US-000026

PATIENT
  Age: 2 Year
  Sex: Female

DRUGS (6)
  1. MEMANTINE. [Suspect]
     Active Substance: MEMANTINE
     Indication: ACCIDENTAL EXPOSURE TO PRODUCT BY CHILD
     Dosage: 10 MG
  2. ACETAMINOPHEN. [Suspect]
     Active Substance: ACETAMINOPHEN
  3. ORLISTAT [Suspect]
     Active Substance: ORLISTAT
     Indication: ACCIDENTAL EXPOSURE TO PRODUCT BY CHILD
  4. DONEPEZIL HYDROCHLORIDE BRAND UNSPECIFIED (VIVIMED) [Suspect]
     Active Substance: DONEPEZIL HYDROCHLORIDE
     Indication: ACCIDENTAL EXPOSURE TO PRODUCT BY CHILD
     Dosage: 20 MG
  5. CALCIUM SUPPLEMENT [Suspect]
     Active Substance: CALCIUM
     Indication: ACCIDENTAL EXPOSURE TO PRODUCT BY CHILD
  6. AN UNKNOWN ANTIBIOTIC [Suspect]
     Active Substance: UNSPECIFIED INGREDIENT
     Indication: ACCIDENTAL EXPOSURE TO PRODUCT BY CHILD

REACTIONS (5)
  - Accidental exposure to product by child [Unknown]
  - Seizure [None]
  - Dystonia [None]
  - Encephalopathy [None]
  - Hallucination, visual [None]
